FAERS Safety Report 26107587 (Version 1)
Quarter: 2025Q4

REPORT INFORMATION
  Report Type: Spontaneous
  Country: US (occurrence: None)
  Receive Date: 20251126
  Receipt Date: 20251126
  Transmission Date: 20260118
  Serious: Yes (Hospitalization)
  Sender: FDA-CTU
  Company Number: None

PATIENT
  Sex: Female

DRUGS (3)
  1. MYFORTIC [Suspect]
     Active Substance: MYCOPHENOLATE SODIUM
     Indication: Renal transplant
     Dosage: TAKE 2 TABLETS (720 MG TOTAL) BY MOUTH IN THE MORNING, AND 1 TABLET (360 MG TOTAL) EVERY EVENING.
     Route: 048
     Dates: start: 20180125
  2. CALCIUM CIT/TAB VIT D [Concomitant]
  3. PROGRAF [Concomitant]
     Active Substance: TACROLIMUS

REACTIONS (1)
  - Unevaluable event [None]
